FAERS Safety Report 9888666 (Version 2)
Quarter: 2014Q1

REPORT INFORMATION
  Report Type: Report from Study
  Country: DE (occurrence: DE)
  Receive Date: 20140211
  Receipt Date: 20140225
  Transmission Date: 20141002
  Serious: Yes (Hospitalization, Other)
  Sender: FDA-Public Use
  Company Number: DE-UCBSA-111417

PATIENT
  Sex: Female
  Weight: 56.1 kg

DRUGS (17)
  1. CIMZIA [Suspect]
     Indication: RHEUMATOID ARTHRITIS
     Dosage: 200 MG
     Dates: start: 200912, end: 201102
  2. CIMZIA [Suspect]
     Indication: RHEUMATOID ARTHRITIS
     Dates: start: 201104, end: 20130409
  3. CIMZIA [Suspect]
     Indication: RHEUMATOID ARTHRITIS
     Dates: start: 20130731
  4. METHOTREXATE [Suspect]
     Indication: RHEUMATOID ARTHRITIS
     Dosage: UNKNOWN DOSE
     Dates: start: 200502, end: 200806
  5. METHOTREXATE [Suspect]
     Indication: RHEUMATOID ARTHRITIS
     Dosage: DOSE: 10 MG
     Route: 048
     Dates: start: 200912, end: 201304
  6. HYDROXYCHLOROQUINE [Concomitant]
     Indication: RHEUMATOID ARTHRITIS
     Dosage: UNKNOWN DOSE
     Dates: start: 200905
  7. HYDROXYCHLOROQUINE [Concomitant]
     Indication: RHEUMATOID ARTHRITIS
     Dosage: 400 MG
     Dates: end: 2010
  8. HYDROXYCHLOROQUINE [Concomitant]
     Indication: RHEUMATOID ARTHRITIS
     Dosage: 200 MG
  9. PREDNISOLONE [Concomitant]
     Dosage: 2 MG/DAY
     Dates: end: 2013
  10. AMLODIPINE [Concomitant]
     Dates: start: 201104
  11. DIOVAN [Concomitant]
     Dates: start: 201104
  12. PANTOPRAZOL [Concomitant]
     Dates: start: 201104
  13. FOLIC ACID [Concomitant]
     Dosage: 5 MG ON FRIDAYS
     Dates: start: 201104
  14. DEKRISTOL [Concomitant]
     Dosage: 20,000 IU ON FRIDAYS
     Dates: start: 201104
  15. ARCOXIA [Concomitant]
  16. ASS [Concomitant]
     Dosage: 100
     Dates: start: 201104
  17. METEX FS [Concomitant]
     Dosage: 12.5 MG
     Route: 058
     Dates: start: 201307

REACTIONS (1)
  - Osteomyelitis bacterial [Not Recovered/Not Resolved]
